FAERS Safety Report 17027689 (Version 1)
Quarter: 2019Q4

REPORT INFORMATION
  Report Type: Spontaneous
  Country: CA (occurrence: CA)
  Receive Date: 20191113
  Receipt Date: 20191113
  Transmission Date: 20200122
  Serious: Yes (Other)
  Sender: FDA-Public Use
  Company Number: CA-BAYER-2019-199604

PATIENT
  Age: 40 Year
  Sex: Female
  Weight: 82.99 kg

DRUGS (3)
  1. PROZAC [Concomitant]
     Active Substance: FLUOXETINE HYDROCHLORIDE
  2. MIRENA [Suspect]
     Active Substance: LEVONORGESTREL
     Indication: CONTRACEPTION
     Dosage: 20 MCG/24HR, CONT
     Route: 015
  3. MIRENA [Suspect]
     Active Substance: LEVONORGESTREL
     Indication: CONTRACEPTION

REACTIONS (9)
  - Weight increased [Recovering/Resolving]
  - Chiropractic [Recovering/Resolving]
  - Loss of libido [Recovering/Resolving]
  - Acupuncture [Recovering/Resolving]
  - Night sweats [Recovering/Resolving]
  - Anxiety [Recovering/Resolving]
  - Physiotherapy [Recovering/Resolving]
  - Back pain [Recovering/Resolving]
  - Abdominal pain [Recovering/Resolving]
